FAERS Safety Report 15110821 (Version 1)
Quarter: 2018Q3

REPORT INFORMATION
  Report Type: Spontaneous
  Country: US (occurrence: US)
  Receive Date: 20180705
  Receipt Date: 20180705
  Transmission Date: 20181010
  Serious: Yes (Other)
  Sender: FDA-Public Use
  Company Number: US-DSJP-DSU-2016-115211

PATIENT

DRUGS (3)
  1. ATORVASTATIN [Concomitant]
     Active Substance: ATORVASTATIN
     Indication: PRODUCT USED FOR UNKNOWN INDICATION
     Dosage: UNK
  2. BENICAR [Suspect]
     Active Substance: OLMESARTAN MEDOXOMIL
     Indication: HYPERTENSION
     Dosage: 40 MG, QD
     Dates: start: 20030414, end: 201504
  3. FENOFIBRATE. [Concomitant]
     Active Substance: FENOFIBRATE
     Indication: PRODUCT USED FOR UNKNOWN INDICATION
     Dosage: UNK

REACTIONS (7)
  - Haematochezia [Unknown]
  - Acute kidney injury [Unknown]
  - Diverticulum [Unknown]
  - Polyp [Unknown]
  - Sprue-like enteropathy [Recovering/Resolving]
  - Gastrooesophageal reflux disease [Unknown]
  - Intestinal metaplasia [Unknown]

NARRATIVE: CASE EVENT DATE: 201405
